FAERS Safety Report 20309179 (Version 6)
Quarter: 2022Q2

REPORT INFORMATION
  Report Type: Spontaneous
  Country: IT (occurrence: IT)
  Receive Date: 20220107
  Receipt Date: 20220401
  Transmission Date: 20220720
  Serious: Yes (Death, Hospitalization, Other)
  Sender: FDA-Public Use
  Company Number: IT-009507513-2112ITA005855

PATIENT
  Age: 77 Year
  Sex: Female
  Weight: 50 kg

DRUGS (43)
  1. ACETAMINOPHEN [Suspect]
     Active Substance: ACETAMINOPHEN
     Indication: Contusion
     Dosage: 500 MILLIGRAM, QD, 1 IN 1
     Route: 048
     Dates: start: 20211020, end: 20211020
  2. ACETAMINOPHEN [Suspect]
     Active Substance: ACETAMINOPHEN
     Indication: Haemorrhoids
     Dosage: 1 GRAM, QD, (1 GM, DAILY AS REQUIRED )
     Route: 048
     Dates: start: 20211021, end: 20211114
  3. ACETAMINOPHEN [Suspect]
     Active Substance: ACETAMINOPHEN
     Dosage: 1 GRAM, QD (1 GM, DAILY AS REQUIRED)
     Route: 048
     Dates: start: 20211020, end: 20211020
  4. ACETAMINOPHEN [Suspect]
     Active Substance: ACETAMINOPHEN
     Indication: Product used for unknown indication
     Dosage: 1 GRAM, QD,1 GM,1 IN 1, PRN
     Route: 042
     Dates: start: 20211025, end: 20211025
  5. LEVOFLOXACIN [Suspect]
     Active Substance: LEVOFLOXACIN
     Indication: Prophylaxis
     Dosage: 500 MILLIGRAM, QD
     Route: 048
     Dates: start: 20210922, end: 20211114
  6. SIMVASTATIN [Interacting]
     Active Substance: SIMVASTATIN
     Indication: Dyslipidaemia
     Dosage: 20 MILLIGRAM, QD, (20 MG ONCE DAILY ORAL )
     Route: 048
     Dates: start: 20150101, end: 20211116
  7. POSACONAZOLE [Interacting]
     Active Substance: POSACONAZOLE
     Indication: Prophylaxis
     Dosage: 300 MILLIGRAM, QD (100 MILLIGRAM, TID)
     Route: 048
     Dates: start: 20210922, end: 20211114
  8. IMETELSTAT [Suspect]
     Active Substance: IMETELSTAT
     Indication: Product used for unknown indication
     Dosage: 125 MILLIGRAM, QD, (125 MILLIGRAM, QD )
     Route: 048
     Dates: start: 20211021, end: 20211024
  9. IMETELSTAT [Suspect]
     Active Substance: IMETELSTAT
     Dosage: UNK
  10. IMETELSTAT [Suspect]
     Active Substance: IMETELSTAT
     Dosage: 125 MILLIGRAM, QD, (125 MILLIGRAM, QD )
     Route: 048
     Dates: start: 20211102, end: 20211114
  11. NOXAFIL [Suspect]
     Active Substance: POSACONAZOLE
     Indication: Antifungal prophylaxis
     Dosage: 300 MILLIGRAM, QD (100 MG THREE TIMES A DAY)
     Route: 048
     Dates: start: 20210922, end: 20211114
  12. NOXAFIL [Suspect]
     Active Substance: POSACONAZOLE
     Indication: Prophylaxis
  13. SIMVASTATIN [Interacting]
     Active Substance: SIMVASTATIN
     Indication: Dyslipidaemia
     Dosage: 20 MILLIGRAM, QD
     Route: 048
     Dates: start: 20150101, end: 20211116
  14. MEROPENEM [Concomitant]
     Active Substance: MEROPENEM
     Indication: Pneumonia
     Dosage: 3000 MILLIGRAM, QD (1000 MG,3 IN 1 D)
     Route: 042
     Dates: start: 20210916, end: 20210921
  15. SARS-CoV-2 vaccine [Concomitant]
     Indication: COVID-19 immunisation
     Dosage: UNK, QD
     Route: 030
     Dates: start: 20210314, end: 20210314
  16. SARS-CoV-2 vaccine [Concomitant]
     Dosage: UNK, QD
     Route: 030
     Dates: start: 20210414, end: 20210414
  17. SODIUM CHLORIDE [Concomitant]
     Active Substance: SODIUM CHLORIDE
     Indication: Hyponatraemia
     Dosage: 2340 MILLIGRAM, QD, 1 IN 1
     Route: 042
     Dates: start: 20211021, end: 20211021
  18. SODIUM CHLORIDE [Concomitant]
     Active Substance: SODIUM CHLORIDE
     Dosage: 2340 MILLIGRAM, QD, 1 IN 1
     Route: 042
     Dates: start: 20211025, end: 20211025
  19. SODIUM CHLORIDE [Concomitant]
     Active Substance: SODIUM CHLORIDE
     Dosage: 2340 MILLIGRAM, QD, 1 IN 1
     Route: 042
     Dates: start: 20211022, end: 20211022
  20. SODIUM CHLORIDE [Concomitant]
     Active Substance: SODIUM CHLORIDE
     Dosage: 0.9 PERCENT, QD, 1 IN 1
     Route: 042
     Dates: start: 20211024, end: 20211024
  21. SODIUM CHLORIDE [Concomitant]
     Active Substance: SODIUM CHLORIDE
     Dosage: 2340 MILLIGRAM, QD, 1 IN 1
     Route: 042
     Dates: start: 20211026, end: 20211026
  22. SODIUM CHLORIDE [Concomitant]
     Active Substance: SODIUM CHLORIDE
     Dosage: UNK, QD
     Route: 042
     Dates: start: 20211112, end: 20211112
  23. SODIUM CHLORIDE [Concomitant]
     Active Substance: SODIUM CHLORIDE
     Dosage: UNK
     Route: 042
     Dates: start: 20211116, end: 20211119
  24. SODIUM CHLORIDE [Concomitant]
     Active Substance: SODIUM CHLORIDE
     Dosage: 60 MILLIEQUIVALENT, QD
  25. SODIUM [Concomitant]
     Active Substance: SODIUM
     Indication: Hyponatraemia
     Dosage: 0.9 PERCENT, QD,1 IN 1 AS REQUIRED
     Route: 042
     Dates: start: 20211018, end: 20211019
  26. MESALAMINE [Concomitant]
     Active Substance: MESALAMINE
     Indication: Haemorrhoids
     Dosage: 1 DOSAGE FORM
     Route: 054
     Dates: start: 20211029
  27. VALDERMA [Concomitant]
     Indication: Haemorrhoids
     Dosage: UNK
     Route: 048
     Dates: start: 20211029
  28. HYDROXYUREA [Concomitant]
     Active Substance: HYDROXYUREA
     Indication: Acute myeloid leukaemia
     Dosage: 1000 MILLIGRAM, QD (500 MG,2 IN 1 D)
     Route: 048
     Dates: start: 20210906, end: 20211017
  29. HYDROXYUREA [Concomitant]
     Active Substance: HYDROXYUREA
     Dosage: 100 MILLIGRAM
     Route: 042
     Dates: start: 20211026, end: 20211026
  30. ACYCLOVIR [Concomitant]
     Active Substance: ACYCLOVIR
     Indication: Prophylaxis
     Dosage: 800 MILLIGRAM, QD, (800 MILLIGRAM, QD )
     Route: 048
     Dates: start: 20190101, end: 20211114
  31. PROCTOLYN [Concomitant]
     Indication: Haemorrhoids
     Dosage: UNK, QD, 0.1+10 MG (3 IN 1 D)
     Route: 061
     Dates: start: 20211021, end: 20211028
  32. OMEPRAZOLE [Concomitant]
     Active Substance: OMEPRAZOLE
     Indication: Prophylaxis
     Dosage: 20 GRAM, QD, 1 IN 1 D
     Route: 048
     Dates: start: 20190101
  33. OMEPRAZOLE [Concomitant]
     Active Substance: OMEPRAZOLE
     Dosage: UNK
  34. MOVICOL [Concomitant]
     Active Substance: POLYETHYLENE GLYCOL 3350\POTASSIUM CHLORIDE\SODIUM BICARBONATE\SODIUM CHLORIDE
     Indication: Constipation
     Dosage: 41.4 GRAM, QD (13.8 GM, 3 IN 1 D)
     Route: 048
     Dates: start: 20211021
  35. LASSAR PASTA MERCK [Concomitant]
     Indication: Haemorrhoids
     Dosage: UNK
     Route: 061
     Dates: start: 20211029
  36. TRAMADOL [Concomitant]
     Active Substance: TRAMADOL
     Indication: Haemorrhoids
     Dosage: 100 MILLIGRAM, QD, 1 IN 1
     Route: 042
     Dates: start: 20211026, end: 20211026
  37. MODURETIC 5-50 [Concomitant]
     Active Substance: AMILORIDE HYDROCHLORIDE\HYDROCHLOROTHIAZIDE
     Indication: Hypertension
     Dosage: UNK, QD (5+50 MG (5 MG,1 IN 1 D) )
     Route: 048
     Dates: start: 20150101
  38. MODURETIC 5-50 [Concomitant]
     Active Substance: AMILORIDE HYDROCHLORIDE\HYDROCHLOROTHIAZIDE
     Dosage: UNK UNK, TID (5+50 MG, TID)
     Route: 048
     Dates: start: 20150101
  39. PIPERACILLIN SODIUM\TAZOBACTAM SODIUM [Concomitant]
     Active Substance: PIPERACILLIN SODIUM\TAZOBACTAM SODIUM
     Dosage: 4 G/ 0.5 G, TID
     Route: 042
     Dates: start: 20211117, end: 20211119
  40. PIPERACILLIN SODIUM\TAZOBACTAM SODIUM [Concomitant]
     Active Substance: PIPERACILLIN SODIUM\TAZOBACTAM SODIUM
     Dosage: UNK, 4 G/ 0.5 G, ONCE
     Route: 042
     Dates: start: 20211120, end: 20211120
  41. Pursennid [Concomitant]
     Dosage: 2 DOSAGE FORM, TOTAL (2 TABLETS, ONCE)
     Route: 048
     Dates: start: 20211119, end: 20211119
  42. POTASSIUM CHLORIDE [Concomitant]
     Active Substance: POTASSIUM CHLORIDE
     Dosage: 20 MILLIEQUIVALENT, QD
     Route: 042
     Dates: start: 20211118, end: 20211119
  43. OXYGEN [Concomitant]
     Active Substance: OXYGEN
     Dosage: 4 LITER, PRN (4 LITRES PER MINUTE AS NEEDED)

REACTIONS (23)
  - Acute myeloid leukaemia [Fatal]
  - Asthenia [Fatal]
  - Tachycardia [Fatal]
  - Vomiting [Fatal]
  - Renal disorder [Fatal]
  - Infection [Fatal]
  - Thrombocytopenia [Fatal]
  - Neutropenia [Fatal]
  - Blood bilirubin increased [Fatal]
  - Blood alkaline phosphatase increased [Fatal]
  - Aspartate aminotransferase increased [Fatal]
  - Blood lactate dehydrogenase increased [Fatal]
  - Pain [Unknown]
  - Pneumonia [Not Recovered/Not Resolved]
  - Hypokalaemia [Unknown]
  - Hyponatraemia [Not Recovered/Not Resolved]
  - Nausea [Not Recovered/Not Resolved]
  - Drug-induced liver injury [Not Recovered/Not Resolved]
  - Diarrhoea [Recovered/Resolved]
  - Constipation [Recovered/Resolved]
  - Anaemia [Not Recovered/Not Resolved]
  - Haemorrhoids [Not Recovered/Not Resolved]
  - Labelled drug-drug interaction medication error [Unknown]

NARRATIVE: CASE EVENT DATE: 20210811
